FAERS Safety Report 7620002-1 (Version None)
Quarter: 2011Q3

REPORT INFORMATION
  Report Type: 
  Country: None (occurrence: None)
  Receive Date: 20110719
  Receipt Date: 20110711
  Transmission Date: 20111222
  Serious: Yes (Death)
  Sender: FDA-Public Use
  Company Number: GB-GENZYME-FLUD-1001315

PATIENT

DRUGS (6)
  1. FLUDARA [Suspect]
     Indication: ACUTE LEUKAEMIA
  2. CAMPATH [Suspect]
     Indication: BONE MARROW CONDITIONING REGIMEN
     Dosage: UNK
     Route: 065
  3. CAMPATH [Suspect]
     Indication: ACUTE LEUKAEMIA
  4. FLUDARA [Suspect]
     Indication: BONE MARROW CONDITIONING REGIMEN
     Dosage: UNK
     Route: 065
  5. BUSULFAN [Suspect]
     Indication: BONE MARROW CONDITIONING REGIMEN
     Dosage: UNK
     Route: 065
  6. BUSULFAN [Suspect]
     Indication: ACUTE LEUKAEMIA

REACTIONS (1)
  - ENCEPHALOPATHY [None]
